FAERS Safety Report 19164027 (Version 1)
Quarter: 2021Q2

REPORT INFORMATION
  Report Type: Spontaneous
  Country: GB (occurrence: GB)
  Receive Date: 20210421
  Receipt Date: 20210421
  Transmission Date: 20210717
  Serious: Yes (Disabling)
  Sender: FDA-Public Use
  Company Number: GB-PFIZER INC-2021391743

PATIENT
  Age: 67 Year

DRUGS (7)
  1. ONDANSETRON [Concomitant]
     Active Substance: ONDANSETRON
     Dosage: UNK
  2. DALTEPARIN [Concomitant]
     Active Substance: DALTEPARIN
     Dosage: UNK
  3. LEVOTHYROXINE. [Concomitant]
     Active Substance: LEVOTHYROXINE
     Dosage: UNK
  4. GENTAMICIN SULFATE. [Suspect]
     Active Substance: GENTAMICIN SULFATE
     Indication: SEPSIS
     Dosage: UNK
  5. TEICOPLANIN [Suspect]
     Active Substance: TEICOPLANIN
     Indication: SEPSIS
     Dosage: UNK
  6. ADCAL D3 [Concomitant]
     Active Substance: CALCIUM CARBONATE\CHOLECALCIFEROL
     Dosage: UNK
  7. CYCLIZINE [Concomitant]
     Active Substance: CYCLIZINE
     Dosage: UNK

REACTIONS (2)
  - Dyspnoea [Recovered/Resolved]
  - Cough [Recovered/Resolved]
